FAERS Safety Report 20951125 (Version 1)
Quarter: 2022Q2

REPORT INFORMATION
  Report Type: Spontaneous
  Country: US (occurrence: US)
  Receive Date: 20220613
  Receipt Date: 20220613
  Transmission Date: 20220721
  Serious: Yes (Death, Other)
  Sender: FDA-Public Use
  Company Number: US-VIVUS, Inc.-2022V1000243

PATIENT
  Age: 40 Year
  Sex: Male
  Weight: 49.032 kg

DRUGS (1)
  1. PANCREAZE [Suspect]
     Active Substance: PANCRELIPASE AMYLASE\PANCRELIPASE LIPASE\PANCRELIPASE PROTEASE
     Indication: Lipid metabolism disorder
     Dosage: 6 CAPSULES WITH MEALS, AND 2 OR SO WITH SNACK DAILY
     Route: 048
     Dates: start: 1983, end: 20220522

REACTIONS (2)
  - Lung transplant rejection [Fatal]
  - Cardiac failure congestive [Unknown]

NARRATIVE: CASE EVENT DATE: 20211201
